FAERS Safety Report 21034039 (Version 1)
Quarter: 2022Q2

REPORT INFORMATION
  Report Type: Spontaneous
  Country: US (occurrence: None)
  Receive Date: 20220630
  Receipt Date: 20220630
  Transmission Date: 20220721
  Serious: No
  Sender: FDA-Public Use
  Company Number: None

PATIENT
  Sex: Female

DRUGS (1)
  1. ICATIBANT ACETATE [Suspect]
     Active Substance: ICATIBANT ACETATE
     Indication: Immunology test abnormal
     Route: 058
     Dates: start: 202206

REACTIONS (4)
  - Peripheral swelling [None]
  - Arthralgia [None]
  - Peripheral swelling [None]
  - Skin discolouration [None]
